FAERS Safety Report 4440397-X (Version None)
Quarter: 2004Q3

REPORT INFORMATION
  Report Type: 
  Country: None (occurrence: None)
  Receive Date: 20040728
  Receipt Date: 20040308
  Transmission Date: 20050211
  Serious: No
  Sender: FDA-Public Use
  Company Number: USA040361304

PATIENT
  Age: 33 Year
  Sex: Male

DRUGS (2)
  1. STRATTERA [Suspect]
     Dosage: 80 MG/1 DAY
     Dates: start: 20040227
  2. WELLBUTRIN [Concomitant]

REACTIONS (1)
  - GENITAL DISORDER MALE [None]
